FAERS Safety Report 21891344 (Version 2)
Quarter: 2023Q1

REPORT INFORMATION
  Report Type: Spontaneous
  Country: CN (occurrence: None)
  Receive Date: 20230120
  Receipt Date: 20230203
  Transmission Date: 20230417
  Serious: Yes (Death, Hospitalization, Other)
  Sender: FDA-Public Use
  Company Number: 2023A012733

PATIENT
  Age: 78 Year
  Sex: Male
  Weight: 65 kg

DRUGS (1)
  1. IMFINZI [Suspect]
     Active Substance: DURVALUMAB
     Indication: Non-small cell lung cancer stage III
     Dosage: 620MG / CYCLE620.0MG EVERY CYCLE
     Route: 042
     Dates: start: 2021

REACTIONS (3)
  - Respiratory failure [Fatal]
  - Pneumonia [Fatal]
  - COVID-19 [Unknown]
